FAERS Safety Report 5119578-8 (Version None)
Quarter: 2006Q4

REPORT INFORMATION
  Report Type: 
  Country: None (occurrence: None)
  Receive Date: 20061003
  Receipt Date: 20060921
  Transmission Date: 20070319
  Serious: Yes (Life-Threatening, Disabling, Other)
  Sender: FDA-Public Use
  Company Number: GB-JNJFOC-20060904065

PATIENT
  Age: 35 Year
  Sex: Female

DRUGS (5)
  1. TOPAMAX [Suspect]
     Indication: EPILEPSY
     Route: 065
  2. GLUCOCORTICOIDS [Concomitant]
     Indication: ADDISON'S DISEASE
  3. DEXAMETHASONE TAB [Concomitant]
     Indication: ADRENOGENITAL SYNDROME
     Dosage: 0.5MG AND 0.25MG ON ALTERNATE DAYS THEN INCREASED TO 0.5MG MANE AND 0.25MG IN EVENING.
     Route: 065
  4. FLUDROCORTISONE [Concomitant]
     Route: 065
  5. FLUDROCORTISONE [Concomitant]
     Indication: ADRENOGENITAL SYNDROME
     Route: 065

REACTIONS (3)
  - ADRENAL INSUFFICIENCY [None]
  - BLOOD CORTICOTROPHIN INCREASED [None]
  - DRUG CLEARANCE INCREASED [None]
